FAERS Safety Report 4389210-X (Version None)
Quarter: 2004Q2

REPORT INFORMATION
  Report Type: 
  Country: None (occurrence: None)
  Receive Date: 20040628
  Receipt Date: 20040617
  Transmission Date: 20050107
  Serious: Yes (Hospitalization)
  Sender: FDA-Public Use
  Company Number: RS004464-F

PATIENT
  Age: 70 Year
  Sex: Male

DRUGS (3)
  1. RABEPRAZOLE SODIUM [Suspect]
     Indication: GASTRITIS
     Dosage: 10 MG, 1 IN 1 D; ORAL
     Route: 048
     Dates: end: 20040212
  2. RABEPRAZOLE SODIUM [Suspect]
     Indication: HIATUS HERNIA
     Dosage: 10 MG, 1 IN 1 D; ORAL
     Route: 048
     Dates: end: 20040212
  3. NOCERTONE (OXETORONE FUMARATE) [Suspect]
     Indication: MIGRAINE
     Dosage: 60 MG, UNKNOWN; ORAL
     Route: 048
     Dates: start: 20030701, end: 20040129

REACTIONS (3)
  - COLITIS [None]
  - HYPERGASTRINAEMIA [None]
  - WEIGHT DECREASED [None]
